FAERS Safety Report 15076771 (Version 1)
Quarter: 2018Q2

REPORT INFORMATION
  Report Type: Spontaneous
  Country: US (occurrence: US)
  Receive Date: 20180607
  Receipt Date: 20180607
  Transmission Date: 20180711
  Serious: No
  Sender: FDA-Public Use
  Company Number: None

PATIENT
  Age: 58 Year
  Sex: Female

DRUGS (1)
  1. AFINITOR [Suspect]
     Active Substance: EVEROLIMUS
     Route: 048
     Dates: start: 20180601, end: 20180607

REACTIONS (3)
  - Fatigue [None]
  - Insomnia [None]
  - Mouth ulceration [None]

NARRATIVE: CASE EVENT DATE: 20180606
